FAERS Safety Report 10265409 (Version 1)
Quarter: 2014Q2

REPORT INFORMATION
  Report Type: Spontaneous
  Country: JP (occurrence: JP)
  Receive Date: 20140627
  Receipt Date: 20140627
  Transmission Date: 20141212
  Serious: Yes (Disabling)
  Sender: FDA-Public Use
  Company Number: JP-ALLERGAN-1414419US

PATIENT
  Age: 82 Year
  Sex: Female

DRUGS (3)
  1. ALPHAGAN [Suspect]
     Indication: GLAUCOMATOUS OPTIC DISC ATROPHY
     Dosage: 2 GTT, BID
     Route: 047
     Dates: start: 20140528, end: 20140620
  2. LATANOPROST [Concomitant]
     Indication: PRODUCT USED FOR UNKNOWN INDICATION
     Dosage: UNK
     Route: 047
     Dates: start: 20131210
  3. HYALEIN [Concomitant]
     Indication: PRODUCT USED FOR UNKNOWN INDICATION
     Route: 047

REACTIONS (1)
  - Dyspnoea [Recovered/Resolved]
